FAERS Safety Report 11984303 (Version 1)
Quarter: 2016Q1

REPORT INFORMATION
  Report Type: Spontaneous
  Country: US (occurrence: US)
  Receive Date: 20160201
  Receipt Date: 20160201
  Transmission Date: 20160526
  Serious: No
  Sender: FDA-Public Use
  Company Number: US-KADMON PHARMACEUTICALS, LLC-KAD201501-000117

PATIENT
  Sex: Female

DRUGS (3)
  1. INTERFERON [Suspect]
     Active Substance: INTERFERON
     Indication: HEPATITIS C
     Dates: start: 200307
  2. HARVONI [Concomitant]
     Active Substance: LEDIPASVIR\SOFOSBUVIR
  3. RIBAVIRIN. [Suspect]
     Active Substance: RIBAVIRIN
     Indication: HEPATITIS C
     Dates: start: 200307

REACTIONS (11)
  - Increased tendency to bruise [Unknown]
  - Dyspnoea [Unknown]
  - Weight decreased [Unknown]
  - Disorientation [Unknown]
  - Muscular weakness [Unknown]
  - Back pain [Unknown]
  - Chest pain [Unknown]
  - Myalgia [Unknown]
  - Arthralgia [Unknown]
  - Fatigue [Unknown]
  - Asthenia [Unknown]
